FAERS Safety Report 18431872 (Version 1)
Quarter: 2020Q4

REPORT INFORMATION
  Report Type: Spontaneous
  Country: US (occurrence: US)
  Receive Date: 20201027
  Receipt Date: 20201027
  Transmission Date: 20210114
  Serious: Yes (Other)
  Sender: FDA-Public Use
  Company Number: US-BAYER-2020-225222

PATIENT
  Age: 82 Year
  Sex: Female

DRUGS (3)
  1. ESCITALOPRAM [Concomitant]
     Active Substance: ESCITALOPRAM OXALATE
     Dosage: UNK MG
  2. ALEVE [Suspect]
     Active Substance: NAPROXEN SODIUM
     Indication: PAIN
     Dosage: UNK DF
     Route: 048
     Dates: start: 20201011
  3. ATORVASTATIN [Concomitant]
     Active Substance: ATORVASTATIN

REACTIONS (1)
  - Overdose [Unknown]

NARRATIVE: CASE EVENT DATE: 20201011
